FAERS Safety Report 22120011 (Version 1)
Quarter: 2023Q1

REPORT INFORMATION
  Report Type: Spontaneous
  Country: FR (occurrence: FR)
  Receive Date: 20230321
  Receipt Date: 20230321
  Transmission Date: 20230417
  Serious: Yes (Other)
  Sender: FDA-Public Use
  Company Number: None

PATIENT
  Age: 82 Year
  Sex: Female

DRUGS (3)
  1. BETAMETHASONE [Suspect]
     Active Substance: BETAMETHASONE
     Indication: Bronchitis
     Dosage: 6 MILLIGRAM, QD, FORMULATION ALSO REPORTED AS DISPERSIBLE, SCORED TABLET
     Route: 048
     Dates: start: 20230215, end: 20230218
  2. ROXITHROMYCIN [Suspect]
     Active Substance: ROXITHROMYCIN
     Indication: Bronchitis
     Dosage: 300 MILLIGRAM, QD
     Route: 048
     Dates: start: 20230215, end: 20230216
  3. ACETYLCYSTEINE [Concomitant]
     Active Substance: ACETYLCYSTEINE
     Dosage: UNK

REACTIONS (2)
  - Atrial fibrillation [Recovering/Resolving]
  - Erythema [Recovered/Resolved]

NARRATIVE: CASE EVENT DATE: 20230215
